FAERS Safety Report 13455031 (Version 1)
Quarter: 2017Q2

REPORT INFORMATION
  Report Type: Spontaneous
  Country: US (occurrence: US)
  Receive Date: 20170419
  Receipt Date: 20170419
  Transmission Date: 20170830
  Serious: Yes (Other)
  Sender: FDA-Public Use
  Company Number: PHHY2017US058280

PATIENT
  Age: 71 Year
  Sex: Male

DRUGS (2)
  1. DIGOXIN. [Suspect]
     Active Substance: DIGOXIN
     Indication: ACRAL LENTIGINOUS MELANOMA
     Dosage: 0.25 MG, QD
     Route: 048
  2. TRAMETINIB [Suspect]
     Active Substance: TRAMETINIB
     Indication: ACRAL LENTIGINOUS MELANOMA
     Dosage: 2 MG, QD
     Route: 048

REACTIONS (8)
  - Rash [Unknown]
  - Syncope [Unknown]
  - Diarrhoea [Unknown]
  - Fatigue [Unknown]
  - Confusional state [Unknown]
  - Acral lentiginous melanoma [Unknown]
  - Malignant neoplasm progression [Unknown]
  - Nausea [Unknown]
